FAERS Safety Report 9300907 (Version 2)
Quarter: 2013Q2

REPORT INFORMATION
  Report Type: Spontaneous
  Country: AU (occurrence: AU)
  Receive Date: 20130521
  Receipt Date: 20130627
  Transmission Date: 20140414
  Serious: Yes (Hospitalization, Other)
  Sender: FDA-Public Use
  Company Number: AU-009507513-1305AUS009838

PATIENT
  Age: 49 Year
  Sex: Male

DRUGS (6)
  1. VICTRELIS 200 MG [Suspect]
     Dosage: 800 MG, TID
     Route: 048
     Dates: end: 20120715
  2. REBETOL [Suspect]
     Indication: LIVER DISORDER
     Dosage: 1200 MG
     Route: 048
     Dates: start: 20120215
  3. REBETOL [Suspect]
     Dosage: 400 MG, UNK
     Route: 048
     Dates: end: 20120715
  4. PEGASYS [Suspect]
     Indication: LIVER DISORDER
     Dosage: 180 MICROGRAM, UNK
     Dates: start: 20120215, end: 20120715
  5. ALDACTONE INJECTION [Concomitant]
  6. BACTRIM [Concomitant]

REACTIONS (14)
  - Fluid overload [Unknown]
  - Ascites [Unknown]
  - Peritonitis bacterial [Unknown]
  - Hepatic encephalopathy [Unknown]
  - Hepatocellular carcinoma [Unknown]
  - Lethargy [Unknown]
  - Oedema [Unknown]
  - Oedema peripheral [Unknown]
  - Joint swelling [Unknown]
  - Nausea [Unknown]
  - Vomiting [Unknown]
  - Diarrhoea [Unknown]
  - Asthenia [Unknown]
  - Irritability [Unknown]
